FAERS Safety Report 11935158 (Version 2)
Quarter: 2016Q2

REPORT INFORMATION
  Report Type: Spontaneous
  Country: US (occurrence: US)
  Receive Date: 20160121
  Receipt Date: 20160418
  Transmission Date: 20160815
  Serious: No
  Sender: FDA-Public Use
  Company Number: US-OTSUKA-2015_013257

PATIENT
  Age: 55 Year
  Sex: Female

DRUGS (4)
  1. REXULTI [Suspect]
     Active Substance: BREXPIPRAZOLE
     Indication: BIPOLAR DISORDER
     Dosage: 1 MG, QD
     Route: 048
     Dates: start: 20151014, end: 201510
  2. SAW PALMETTO [Concomitant]
     Active Substance: SAW PALMETTO
     Dosage: 320 MG, QD
     Route: 065
     Dates: start: 201510, end: 20151019
  3. SAW PALMETTO [Concomitant]
     Active Substance: SAW PALMETTO
     Indication: PRODUCT USED FOR UNKNOWN INDICATION
     Dosage: 585 MG, QD
     Route: 065
     Dates: start: 201510, end: 201510
  4. REXULTI [Suspect]
     Active Substance: BREXPIPRAZOLE
     Dosage: 2 MG, QD
     Route: 048
     Dates: start: 201510

REACTIONS (2)
  - Galactorrhoea [Not Recovered/Not Resolved]
  - Off label use [Unknown]

NARRATIVE: CASE EVENT DATE: 20151018
